FAERS Safety Report 7718699-0 (Version None)
Quarter: 2011Q3

REPORT INFORMATION
  Report Type: 
  Country: None (occurrence: None)
  Receive Date: 20110830
  Receipt Date: 20110818
  Transmission Date: 20111222
  Serious: No
  Sender: FDA-Public Use
  Company Number: BR-ELI_LILLY_AND_COMPANY-BR201108005994

PATIENT
  Sex: Male
  Weight: 77 kg

DRUGS (2)
  1. ZYPREXA [Suspect]
     Indication: HYPERTENSION
     Dosage: 5 MG, BID
     Route: 048
  2. ZYPREXA [Suspect]
     Indication: NERVOUS SYSTEM DISORDER
     Dosage: 2.5 MG, QD
     Route: 048

REACTIONS (3)
  - HAEMATOCRIT DECREASED [None]
  - PLATELET COUNT DECREASED [None]
  - OFF LABEL USE [None]
